FAERS Safety Report 17903714 (Version 5)
Quarter: 2021Q2

REPORT INFORMATION
  Report Type: Spontaneous
  Country: US (occurrence: US)
  Receive Date: 20200617
  Receipt Date: 20210629
  Transmission Date: 20210717
  Serious: Yes (Hospitalization, Other)
  Sender: FDA-Public Use
  Company Number: US-TEVA-2020-US-1248325

PATIENT
  Age: 57 Year
  Sex: Male

DRUGS (20)
  1. AMLODIPINE BESYLATE LUPIN PHARMACE [Suspect]
     Active Substance: AMLODIPINE BESYLATE
     Route: 048
     Dates: start: 2016, end: 2018
  2. VITAMIN B12 [Concomitant]
     Active Substance: CYANOCOBALAMIN
     Indication: VITAMIN B12 DEFICIENCY
     Dosage: DOSAGE: 1000 MG
     Dates: start: 201908
  3. ASPIRIN. [Concomitant]
     Active Substance: ASPIRIN
     Dosage: DOSAGE: 81 MG
  4. HYDROCHLOROTHIAZIDE TEVA [Suspect]
     Active Substance: HYDROCHLOROTHIAZIDE
     Indication: HYPERTENSION
     Route: 048
     Dates: start: 2015, end: 2018
  5. VALSARTAN  CAMBER [Suspect]
     Active Substance: VALSARTAN
     Indication: HYPERTENSION
     Route: 048
     Dates: start: 20150725, end: 20180626
  6. HYDROCHLOROTHIAZIDE ACCORD [Suspect]
     Active Substance: HYDROCHLOROTHIAZIDE
     Indication: HYPERTENSION
     Route: 048
     Dates: start: 2015, end: 2018
  7. HYDROCHLOROTHIAZIDE UNICHEM [Suspect]
     Active Substance: HYDROCHLOROTHIAZIDE
     Indication: HYPERTENSION
     Route: 048
     Dates: start: 2015, end: 2018
  8. VITAMIN C [Concomitant]
     Active Substance: ASCORBIC ACID
     Dosage: DOSAGE: 1000MG
     Dates: start: 201801
  9. VALSARTAN SOLCO [Suspect]
     Active Substance: VALSARTAN
     Indication: HYPERTENSION
     Route: 048
     Dates: start: 20150725, end: 20180626
  10. AMLODIPINE BESYLATE LUPIN PHARMACE [Suspect]
     Active Substance: AMLODIPINE BESYLATE
     Route: 048
     Dates: start: 2016, end: 2018
  11. VITAMIN B COMPLEX [Concomitant]
     Active Substance: CYANOCOBALAMIN\DEXPANTHENOL\NIACINAMIDE\PYRIDOXINE HYDROCHLORIDE\RIBOFLAVIN 5^-PHOSPHATE SODIUM\THIAMINE HYDROCHLORIDE\VITAMIN B COMPLEX
     Dosage: DOSAGE: 1 TABLET
     Dates: start: 201801
  12. LOSARTAN. [Concomitant]
     Active Substance: LOSARTAN
     Indication: HYPERTENSION
     Dosage: DOSAGE: 100MG
     Dates: start: 201808
  13. VALSARTAN ACTAVIS [Suspect]
     Active Substance: VALSARTAN
     Indication: HYPERTENSION
     Route: 048
     Dates: start: 20150725, end: 20180626
  14. VALSARTAN QUALITEST [Suspect]
     Active Substance: VALSARTAN
     Indication: HYPERTENSION
     Route: 048
     Dates: start: 20150725, end: 20180626
  15. AMIODARONE [Concomitant]
     Active Substance: AMIODARONE
     Indication: HYPERTENSION
     Dosage: 5 MG + 10 ML
     Route: 065
  16. FENOFIBRATE. [Concomitant]
     Active Substance: FENOFIBRATE
     Indication: BLOOD CHOLESTEROL INCREASED
     Dosage: DOSAGE: 145MILLIGRAM
  17. FOLIC ACID. [Concomitant]
     Active Substance: FOLIC ACID
     Dosage: 800MCG
     Dates: start: 201908
  18. AMLODIPINE BESYLATE LUPIN PHARMACE [Suspect]
     Active Substance: AMLODIPINE BESYLATE
     Indication: HYPERTENSION
     Route: 048
     Dates: start: 2016, end: 2018
  19. VITAMINS [Concomitant]
     Active Substance: VITAMINS
  20. ADULT VITAMINS [Concomitant]
     Dosage: DOSAGE: 1 VITAMIN
     Dates: start: 201801

REACTIONS (1)
  - Colon cancer [Unknown]
